FAERS Safety Report 14946754 (Version 1)
Quarter: 2018Q2

REPORT INFORMATION
  Report Type: Spontaneous
  Country: US (occurrence: US)
  Receive Date: 20180529
  Receipt Date: 20180529
  Transmission Date: 20180711
  Serious: Yes (Other)
  Sender: FDA-Public Use
  Company Number: US-GUERBET-US-20180129

PATIENT
  Age: 27 Year
  Sex: Male

DRUGS (2)
  1. LIPIODOL [Suspect]
     Active Substance: ETHIODIZED OIL
     Indication: LYMPHANGIOGRAM
     Route: 042
  2. UNKNOWN IV CONTRAST [Suspect]
     Active Substance: UNSPECIFIED INGREDIENT
     Indication: CATHETER MANAGEMENT
     Route: 042

REACTIONS (6)
  - Aphasia [Recovered/Resolved]
  - Mental disorder [Recovered/Resolved]
  - Confusional state [Recovered/Resolved]
  - Aphasia [None]
  - Somnolence [Recovered/Resolved]
  - Computerised tomogram head abnormal [None]
